FAERS Safety Report 18447972 (Version 2)
Quarter: 2021Q1

REPORT INFORMATION
  Report Type: Report from Study
  Country: JP (occurrence: JP)
  Receive Date: 20201030
  Receipt Date: 20210128
  Transmission Date: 20210419
  Serious: Yes (Death, Life-Threatening, Hospitalization, Other)
  Sender: FDA-Public Use
  Company Number: JP-JNJFOC-A-CH2017-148392

PATIENT
  Age: 38 Year
  Sex: Male

DRUGS (94)
  1. EPOPROSTENOL ACT [Suspect]
     Active Substance: EPOPROSTENOL
     Dosage: 63 UG/KG, PER MIN
     Route: 042
     Dates: end: 201608
  2. ADCIRCA [Concomitant]
     Active Substance: TADALAFIL
  3. FUROSEMIDE. [Concomitant]
     Active Substance: FUROSEMIDE
     Route: 048
     Dates: start: 20160405
  4. LANSOPRAZOLE. [Concomitant]
     Active Substance: LANSOPRAZOLE
     Route: 048
     Dates: start: 20170602, end: 20170810
  5. PRIMPERAN [Concomitant]
     Active Substance: METOCLOPRAMIDE HYDROCHLORIDE
     Indication: PROPHYLAXIS
     Route: 048
     Dates: end: 20161116
  6. THYRADIN S [Concomitant]
     Active Substance: LEVOTHYROXINE SODIUM
     Dosage: 162.5?175 MCG Q.D.
     Route: 048
     Dates: start: 20160221, end: 20160322
  7. LASIX [Concomitant]
     Active Substance: FUROSEMIDE
     Dosage: 30?10MG
     Dates: start: 20171119, end: 20180203
  8. TRANEXAMIC ACID. [Concomitant]
     Active Substance: TRANEXAMIC ACID
     Indication: HAEMOPTYSIS
     Route: 042
     Dates: start: 20161110, end: 20161116
  9. PIPERACILLIN AND TAZOBACTAM [Concomitant]
     Active Substance: PIPERACILLIN SODIUM\TAZOBACTAM SODIUM
     Indication: PROPHYLAXIS
     Route: 042
     Dates: start: 20171205, end: 20171219
  10. REVATIO [Suspect]
     Active Substance: SILDENAFIL CITRATE
     Dosage: 40?50MG PER DAY
     Route: 048
     Dates: start: 20160405, end: 20160410
  11. FUROSEMIDE. [Concomitant]
     Active Substance: FUROSEMIDE
     Indication: RIGHT VENTRICULAR FAILURE
     Route: 048
  12. LANSOPRAZOLE. [Concomitant]
     Active Substance: LANSOPRAZOLE
     Indication: PROPHYLAXIS
     Route: 048
  13. CEFZON [Concomitant]
     Indication: PROPHYLAXIS
     Route: 048
     Dates: start: 20170703, end: 20170709
  14. UPTRAVI [Concomitant]
     Active Substance: SELEXIPAG
     Route: 048
     Dates: start: 20170124, end: 20170703
  15. HANP [Concomitant]
     Active Substance: CARPERITIDE
     Indication: RIGHT VENTRICULAR FAILURE
     Dosage: 0.0125 DF, QD
     Route: 042
     Dates: start: 20160908, end: 20161010
  16. TAKECAB [Concomitant]
     Active Substance: VONOPRAZAN FUMARATE
     Route: 048
     Dates: start: 20170810, end: 20180203
  17. OMEPRAZOLE                         /00661202/ [Concomitant]
     Active Substance: OMEPRAZOLE SODIUM
     Indication: PROPHYLAXIS
     Route: 042
     Dates: start: 20171118, end: 20171128
  18. SOSEGON [PENTAZOCINE] [Concomitant]
     Active Substance: PENTAZOCINE
     Indication: BILIARY COLIC
     Route: 042
     Dates: start: 20180107, end: 20180202
  19. METRONIDAZOLE. [Concomitant]
     Active Substance: METRONIDAZOLE
     Indication: PSEUDOMEMBRANOUS COLITIS
     Route: 042
     Dates: start: 20180203, end: 20180203
  20. EPOPROSTENOL ACT [Suspect]
     Active Substance: EPOPROSTENOL
     Dosage: 49.23 UG/KG, PER MIN
     Route: 042
     Dates: start: 20160314
  21. EPOPROSTENOL ACT [Suspect]
     Active Substance: EPOPROSTENOL
     Dosage: 55.3 UG/KG, PER MIN
     Route: 042
     Dates: start: 20160516
  22. FUROSEMIDE. [Concomitant]
     Active Substance: FUROSEMIDE
     Dosage: 40 ? 80 MG
     Route: 048
     Dates: start: 20160917
  23. FUROSEMIDE. [Concomitant]
     Active Substance: FUROSEMIDE
     Dosage: 40 ? 100 MG
     Route: 048
     Dates: start: 20171118
  24. LUPRAC [Concomitant]
     Active Substance: TORSEMIDE
     Indication: RIGHT VENTRICULAR FAILURE
     Dates: end: 20160916
  25. PREDONINE [Concomitant]
     Active Substance: PREDNISOLONE
     Route: 048
     Dates: start: 20151006, end: 20151019
  26. THYRADIN S [Concomitant]
     Active Substance: LEVOTHYROXINE SODIUM
     Route: 048
     Dates: start: 20151020, end: 20151028
  27. OXYGEN. [Concomitant]
     Active Substance: OXYGEN
  28. SOLU?CORTEF [Concomitant]
     Active Substance: HYDROCORTISONE SODIUM SUCCINATE
     Route: 042
     Dates: start: 20171208, end: 20171217
  29. SOLU?CORTEF [Concomitant]
     Active Substance: HYDROCORTISONE SODIUM SUCCINATE
     Route: 042
     Dates: start: 20180131, end: 20180131
  30. THROMBOMODULIN ALFA [Concomitant]
     Active Substance: THROMBOMODULIN ALFA
     Dates: start: 20171119, end: 20180203
  31. OPSUMIT [Suspect]
     Active Substance: MACITENTAN
     Indication: PULMONARY ARTERIAL HYPERTENSION
     Dosage: 10 MG, QD
     Route: 048
     Dates: start: 20150731, end: 20180203
  32. EPOPROSTENOL ACT [Suspect]
     Active Substance: EPOPROSTENOL
     Route: 042
     Dates: end: 20180203
  33. REVATIO [Suspect]
     Active Substance: SILDENAFIL CITRATE
     Indication: PULMONARY ARTERIAL HYPERTENSION
     Dosage: 10 MG, TID
     Route: 048
     Dates: start: 20160329, end: 20160404
  34. DOBUTAMINE [Suspect]
     Active Substance: DOBUTAMINE HYDROCHLORIDE
     Dosage: 2.4GAMMA
     Dates: start: 20171128, end: 20180116
  35. PREDONINE [Concomitant]
     Active Substance: PREDNISOLONE
     Route: 048
     Dates: start: 20171119
  36. BAKTAR [Concomitant]
     Active Substance: SULFAMETHOXAZOLE\TRIMETHOPRIM
     Indication: PROPHYLAXIS
     Dosage: 1 DF, QD
     Dates: end: 20160223
  37. SAMSCA [Concomitant]
     Active Substance: TOLVAPTAN
     Indication: RIGHT VENTRICULAR FAILURE
     Dosage: 3.75?15MG
     Route: 048
     Dates: start: 20160909, end: 20180203
  38. LASIX [Concomitant]
     Active Substance: FUROSEMIDE
     Indication: RIGHT VENTRICULAR FAILURE
     Dosage: 20?40MG/DAY
     Dates: start: 20161108, end: 20161122
  39. ADONA                              /00056903/ [Concomitant]
     Active Substance: CARBAZOCHROME SODIUM SULFONATE
     Indication: PROPHYLAXIS
     Route: 048
     Dates: start: 20161110, end: 20161116
  40. BOSMIN [EPINEPHRINE] [Concomitant]
     Indication: RIGHT VENTRICULAR FAILURE
     Dates: start: 20180130, end: 20180203
  41. SOLU?CORTEF [Concomitant]
     Active Substance: HYDROCORTISONE SODIUM SUCCINATE
     Indication: ADRENAL INSUFFICIENCY
     Dosage: 100 ? 200 MG, QD
     Route: 042
     Dates: start: 20171119, end: 20171127
  42. GLOBULIN [Concomitant]
     Indication: DISSEMINATED INTRAVASCULAR COAGULATION
     Route: 042
     Dates: start: 20171119, end: 20171120
  43. EPOPROSTENOL ACT [Suspect]
     Active Substance: EPOPROSTENOL
     Indication: PULMONARY ARTERIAL HYPERTENSION
     Dosage: 46.72 UG/KG, PER MIN
     Route: 042
     Dates: end: 20160313
  44. EPOPROSTENOL ACT [Suspect]
     Active Substance: EPOPROSTENOL
     Dosage: 53.8 UG/KG, PER MIN
     Route: 042
     Dates: end: 20160515
  45. DOBUTAMINE [Suspect]
     Active Substance: DOBUTAMINE HYDROCHLORIDE
     Indication: PULMONARY ARTERIAL HYPERTENSION
     Dosage: 2 DF QD
     Route: 042
     Dates: start: 20160728, end: 20160824
  46. DOBUTAMINE [Suspect]
     Active Substance: DOBUTAMINE HYDROCHLORIDE
     Dates: end: 20180203
  47. FUROSEMIDE. [Concomitant]
     Active Substance: FUROSEMIDE
     Route: 048
     Dates: start: 20160301, end: 20160309
  48. GLUCONSAN K [Concomitant]
     Active Substance: POTASSIUM GLUCONATE
     Indication: HYPOKALAEMIA
     Dosage: 2 ?3 T
     Route: 048
     Dates: end: 20171121
  49. FEBURIC [Concomitant]
     Active Substance: FEBUXOSTAT
     Indication: HYPERURICAEMIA
     Route: 048
     Dates: end: 20171121
  50. TRANSAMIN [Concomitant]
     Active Substance: TRANEXAMIC ACID
     Indication: PROPHYLAXIS
     Route: 048
     Dates: end: 20171121
  51. THYRADIN S [Concomitant]
     Active Substance: LEVOTHYROXINE SODIUM
     Indication: HYPOTHYROIDISM
     Route: 048
     Dates: start: 20151006
  52. THYRADIN S [Concomitant]
     Active Substance: LEVOTHYROXINE SODIUM
     Route: 048
     Dates: start: 20151029, end: 20160106
  53. THYRADIN S [Concomitant]
     Active Substance: LEVOTHYROXINE SODIUM
     Dosage: 150?75 MCG Q.D.
     Route: 048
     Dates: start: 20160323, end: 20160502
  54. HANP [Concomitant]
     Active Substance: CARPERITIDE
     Dosage: 0.02 DF, QD
     Route: 042
     Dates: start: 20161117, end: 20170111
  55. LEPETAN [Concomitant]
     Active Substance: BUPRENORPHINE HYDROCHLORIDE
     Indication: SEDATION
     Route: 042
     Dates: start: 20180202, end: 20180202
  56. PLATELETS [Concomitant]
     Active Substance: HUMAN PLATELET, ALLOGENIC
     Indication: THROMBOCYTOPENIA
     Route: 042
     Dates: start: 20171119, end: 20171119
  57. ATARAX?P [HYDROXYZINE HYDROCHLORIDE] [Concomitant]
     Indication: BILIARY COLIC
     Route: 042
     Dates: start: 20180202, end: 20180202
  58. SULPERAZON [Concomitant]
     Active Substance: CEFOPERAZONE SODIUM\SULBACTAM SODIUM
     Indication: DEVICE RELATED INFECTION
     Route: 042
     Dates: start: 20171118, end: 20171118
  59. DOBUTAMINE [Suspect]
     Active Substance: DOBUTAMINE HYDROCHLORIDE
     Indication: RIGHT VENTRICULAR FAILURE
     Dosage: 2?10MGGAMMA
     Dates: start: 20161010, end: 20170109
  60. FUROSEMIDE. [Concomitant]
     Active Substance: FUROSEMIDE
     Route: 048
     Dates: end: 20160814
  61. FUROSEMIDE. [Concomitant]
     Active Substance: FUROSEMIDE
     Route: 048
     Dates: start: 20160815, end: 20160916
  62. SPIRONOLACTONE. [Concomitant]
     Active Substance: SPIRONOLACTONE
     Indication: RIGHT VENTRICULAR FAILURE
     Route: 048
  63. CEFAZOLIN NA [Concomitant]
     Active Substance: CEFAZOLIN SODIUM
     Indication: PROPHYLAXIS
     Route: 048
     Dates: start: 20160803, end: 20160808
  64. TAKECAB [Concomitant]
     Active Substance: VONOPRAZAN FUMARATE
     Indication: PROPHYLAXIS
     Route: 048
     Dates: start: 20161107, end: 20170111
  65. POTASSIUM CHLORIDE. [Concomitant]
     Active Substance: POTASSIUM CHLORIDE
     Indication: HYPOKALAEMIA
     Dosage: 20?40 MEQ/DAY
     Route: 048
     Dates: start: 20161111, end: 20161209
  66. NOREPINEPHRINE HYDROCHLORIDE [Concomitant]
     Active Substance: NOREPINEPHRINE HYDROCHLORIDE, (+/-)-
     Indication: RIGHT VENTRICULAR FAILURE
     Route: 048
     Dates: start: 20180203, end: 20180203
  67. VANCOMYCIN [Concomitant]
     Active Substance: VANCOMYCIN
     Indication: DEVICE RELATED INFECTION
     Dosage: 0.5?1G BID
     Route: 042
     Dates: start: 20171119, end: 20171127
  68. EPOPROSTENOL ACT [Suspect]
     Active Substance: EPOPROSTENOL
     Dosage: 62 UG/KG, PER MIN
     Route: 042
  69. REVATIO [Suspect]
     Active Substance: SILDENAFIL CITRATE
     Dosage: 20 MG, TID
     Route: 048
     Dates: start: 20160419, end: 20180203
  70. PREDONINE [Concomitant]
     Active Substance: PREDNISOLONE
     Indication: SILENT THYROIDITIS
     Route: 048
     Dates: end: 20151015
  71. PREDONINE [Concomitant]
     Active Substance: PREDNISOLONE
     Route: 048
     Dates: start: 20151028, end: 20160222
  72. ADONA [Concomitant]
     Indication: PROPHYLAXIS
     Route: 048
     Dates: start: 20161110, end: 20161116
  73. THYRADIN S [Concomitant]
     Active Substance: LEVOTHYROXINE SODIUM
     Route: 048
     Dates: start: 20160107, end: 20160219
  74. THYRADIN S [Concomitant]
     Active Substance: LEVOTHYROXINE SODIUM
     Dosage: 50?87.5 MCG Q.D.
     Route: 048
  75. UPTRAVI [Concomitant]
     Active Substance: SELEXIPAG
     Indication: PULMONARY ARTERIAL HYPERTENSION
     Route: 048
     Dates: start: 20170117, end: 20170123
  76. UPTRAVI [Concomitant]
     Active Substance: SELEXIPAG
     Route: 048
     Dates: start: 20170704, end: 20180203
  77. HANP [Concomitant]
     Active Substance: CARPERITIDE
     Route: 042
     Dates: start: 20171225, end: 20171227
  78. LEVOFLOXACIN HEMIHYDRATE [Concomitant]
     Active Substance: LEVOFLOXACIN
     Indication: PROPHYLAXIS
     Route: 048
     Dates: start: 20180116, end: 20180122
  79. PRECEDEX [Concomitant]
     Active Substance: DEXMEDETOMIDINE HYDROCHLORIDE
     Indication: SEDATION
     Dosage: 1 ML
     Route: 042
     Dates: start: 20180202, end: 20180203
  80. DOPAMINE [Concomitant]
     Active Substance: DOPAMINE HYDROCHLORIDE
     Indication: RIGHT VENTRICULAR FAILURE
     Dosage: 3.6Y
     Route: 042
     Dates: start: 20180116, end: 20180130
  81. NEUTROGIN [Concomitant]
     Active Substance: LENOGRASTIM
     Indication: GRANULOCYTE COUNT DECREASED
     Route: 042
     Dates: start: 20180116, end: 20180116
  82. ADONA [Concomitant]
     Route: 048
  83. BONALON [Concomitant]
     Active Substance: ALENDRONATE SODIUM
     Indication: PROPHYLAXIS
     Dosage: 35 MG, UNK
     Route: 048
     Dates: end: 20160223
  84. THYRADIN S [Concomitant]
     Active Substance: LEVOTHYROXINE SODIUM
     Route: 048
     Dates: start: 20160503
  85. THYRADIN S [Concomitant]
     Active Substance: LEVOTHYROXINE SODIUM
     Route: 048
     Dates: end: 20180203
  86. CEFAZOLIN NA [Concomitant]
     Active Substance: CEFAZOLIN SODIUM
     Route: 048
     Dates: start: 20161031, end: 20161101
  87. CEFAZOLIN NA [Concomitant]
     Active Substance: CEFAZOLIN SODIUM
     Route: 048
     Dates: start: 20161026, end: 20170128
  88. CEFACLOR. [Concomitant]
     Active Substance: CEFACLOR
     Indication: PROPHYLAXIS
     Route: 048
     Dates: start: 20161005, end: 20161010
  89. CLINDAMYCIN HYDROCHLORIDE. [Concomitant]
     Active Substance: CLINDAMYCIN HYDROCHLORIDE
     Indication: PROPHYLAXIS
     Route: 048
     Dates: start: 20170126, end: 20170126
  90. PLATELETS [Concomitant]
     Active Substance: HUMAN PLATELET, ALLOGENIC
     Route: 042
     Dates: start: 20171129, end: 20171129
  91. ACELIO [Concomitant]
     Active Substance: ACETAMINOPHEN
     Indication: BILIARY COLIC
     Route: 042
     Dates: start: 20180202, end: 20180202
  92. NOREPINEPHRINE HYDROCHLORIDE [Concomitant]
     Active Substance: NOREPINEPHRINE HYDROCHLORIDE, (+/-)-
     Indication: SEPTIC SHOCK
     Route: 042
     Dates: start: 20171119, end: 20171120
  93. NOREPINEPHRINE HYDROCHLORIDE [Concomitant]
     Active Substance: NOREPINEPHRINE HYDROCHLORIDE, (+/-)-
     Dosage: 25600E
     Dates: start: 20171119, end: 20171121
  94. DOPAMINE [Concomitant]
     Active Substance: DOPAMINE HYDROCHLORIDE
     Dosage: 5?2.5GAMMA
     Route: 048
     Dates: start: 20171118, end: 20171118

REACTIONS (27)
  - Thrombocytopenia [Recovering/Resolving]
  - Pneumonia [Recovered/Resolved]
  - Device related infection [Recovered/Resolved]
  - Catheter management [Unknown]
  - Anaemia [Recovered/Resolved]
  - Haematochezia [Recovered/Resolved]
  - Platelet transfusion [Unknown]
  - Rash [Recovered/Resolved]
  - Chills [Recovered/Resolved]
  - Pyrexia [Recovered/Resolved]
  - Weight increased [Recovering/Resolving]
  - Pseudomembranous colitis [Not Recovered/Not Resolved]
  - Fluid overload [Recovering/Resolving]
  - Dyspnoea [Recovering/Resolving]
  - Septic shock [Recovered/Resolved]
  - Granulocyte count decreased [Recovered/Resolved]
  - Right ventricular failure [Fatal]
  - Concomitant disease aggravated [Fatal]
  - Shock [Recovered/Resolved]
  - Syncope [Recovered/Resolved]
  - Haemoptysis [Recovered/Resolved]
  - Sepsis [Recovered/Resolved]
  - Adrenal insufficiency [Not Recovered/Not Resolved]
  - Transfusion [Unknown]
  - Brain natriuretic peptide increased [Recovering/Resolving]
  - Disseminated intravascular coagulation [Recovered/Resolved]
  - Biliary colic [Recovering/Resolving]

NARRATIVE: CASE EVENT DATE: 201602
